FAERS Safety Report 23921461 (Version 1)
Quarter: 2024Q2

REPORT INFORMATION
  Report Type: Spontaneous
  Country: US (occurrence: US)
  Receive Date: 20240530
  Receipt Date: 20240530
  Transmission Date: 20240716
  Serious: No
  Sender: FDA-Public Use
  Company Number: US-MYLANLABS-2024M1043987

PATIENT
  Age: 85 Year
  Sex: Male

DRUGS (1)
  1. NITROGLYCERIN [Suspect]
     Active Substance: NITROGLYCERIN
     Indication: Product used for unknown indication
     Dosage: 0.4 MILLIGRAM
     Route: 060
     Dates: start: 2024

REACTIONS (2)
  - Drug ineffective [Unknown]
  - Anaesthesia oral [Unknown]

NARRATIVE: CASE EVENT DATE: 20240501
